FAERS Safety Report 20532723 (Version 2)
Quarter: 2022Q1

REPORT INFORMATION
  Report Type: Spontaneous
  Country: US (occurrence: US)
  Receive Date: 20220301
  Receipt Date: 20220318
  Transmission Date: 20220423
  Serious: Yes (Other)
  Sender: FDA-Public Use
  Company Number: US-JAZZ-2022-US-004745

PATIENT
  Age: 11 Year
  Sex: Male

DRUGS (1)
  1. RYLAZE [Suspect]
     Active Substance: ASPARAGINASE ERWINIA CHRYSANTHEMI (RECOMBINANT)-RYWN
     Indication: Acute myeloid leukaemia
     Dosage: UNK
     Route: 030

REACTIONS (4)
  - Encephalopathy [Unknown]
  - Ammonia increased [Unknown]
  - Rash [Unknown]
  - Product use in unapproved indication [Unknown]
